FAERS Safety Report 12664844 (Version 2)
Quarter: 2016Q3

REPORT INFORMATION
  Report Type: Report from Study
  Country: JP (occurrence: JP)
  Receive Date: 20160818
  Receipt Date: 20160915
  Transmission Date: 20161109
  Serious: Yes (Other)
  Sender: FDA-Public Use
  Company Number: JP-PFIZER INC-2016134621

PATIENT
  Age: 60 Year
  Sex: Female

DRUGS (5)
  1. 5-FU [Suspect]
     Active Substance: FLUOROURACIL
     Dosage: 2400 MG/M2, CYCLIC, EVERY 2 WEEKS 46-HOUR INFUSION
     Route: 041
  2. LEUCOVORIN. [Suspect]
     Active Substance: LEUCOVORIN
     Indication: RECTAL CANCER
     Dosage: 200 MG/M2, CYCLIC EVERY 2 WEEKS IN 2HR INFUSION
     Route: 041
  3. 5-FU [Suspect]
     Active Substance: FLUOROURACIL
     Indication: RECTAL CANCER
     Dosage: 400 MG/M2, CYCLIC , EVERY 2 WEEKS
     Route: 040
  4. BEVACIZUMAB [Suspect]
     Active Substance: BEVACIZUMAB
     Indication: RECTAL CANCER
     Dosage: 5 MG/KG, CYCLIC EVERY 2 WEEKS ON DAY 1, EVERY 2 WEEKS 30-MINUTE INFUSION
     Route: 041
  5. OXALIPLATIN. [Suspect]
     Active Substance: OXALIPLATIN
     Indication: RECTAL CANCER
     Dosage: 85 MG/M2, CYCLIC , EVERY 2 WEEKS AS A 2-HOUR INFUSION
     Route: 041

REACTIONS (2)
  - Neutropenia [Unknown]
  - Neurotoxicity [Unknown]
